FAERS Safety Report 13571807 (Version 1)
Quarter: 2017Q2

REPORT INFORMATION
  Report Type: Spontaneous
  Country: US (occurrence: US)
  Receive Date: 20170522
  Receipt Date: 20170522
  Transmission Date: 20170830
  Serious: No
  Sender: FDA-Public Use
  Company Number: None

PATIENT
  Age: 64 Year
  Sex: Male
  Weight: 85.5 kg

DRUGS (1)
  1. LEVOFLOXACIN. [Suspect]
     Active Substance: LEVOFLOXACIN
     Indication: BRONCHITIS
     Route: 048
     Dates: start: 20151228, end: 20151229

REACTIONS (8)
  - Oropharyngeal pain [None]
  - Tongue ulceration [None]
  - Throat tightness [None]
  - Mouth swelling [None]
  - Swollen tongue [None]
  - Mouth ulceration [None]
  - Paraesthesia oral [None]
  - Oral pain [None]

NARRATIVE: CASE EVENT DATE: 20151229
